FAERS Safety Report 24990165 (Version 1)
Quarter: 2025Q1

REPORT INFORMATION
  Report Type: Spontaneous
  Country: US (occurrence: None)
  Receive Date: 20250219
  Receipt Date: 20250219
  Transmission Date: 20250409
  Serious: Yes (Other)
  Sender: FDA-CTU
  Company Number: None

PATIENT
  Age: 82 Year
  Sex: Female
  Weight: 52.16 kg

DRUGS (1)
  1. PREDNISOLONE ACETATE [Suspect]
     Active Substance: PREDNISOLONE ACETATE
     Indication: Cataract operation
     Dates: start: 20250122, end: 20250204

REACTIONS (16)
  - Blood pressure increased [None]
  - Chest pain [None]
  - Angina pectoris [None]
  - Headache [None]
  - Hyperhidrosis [None]
  - Dyspepsia [None]
  - Diarrhoea [None]
  - Peripheral swelling [None]
  - Peripheral swelling [None]
  - Urine output decreased [None]
  - Irritability [None]
  - Dry skin [None]
  - Fungal skin infection [None]
  - Eczema [None]
  - Arthralgia [None]
  - Arthralgia [None]

NARRATIVE: CASE EVENT DATE: 20250123
